FAERS Safety Report 23189951 (Version 1)
Quarter: 2023Q4

REPORT INFORMATION
  Report Type: Other
  Country: GB (occurrence: None)
  Receive Date: 20231116
  Receipt Date: 20231116
  Transmission Date: 20240109
  Serious: Yes (Other)
  Sender: FDA-Public Use
  Company Number: GB-ROCHE-2862835

PATIENT
  Age: 58 Year
  Sex: Female

DRUGS (4)
  1. TOCILIZUMAB [Suspect]
     Active Substance: TOCILIZUMAB
     Indication: Rheumatoid arthritis
     Dosage: PRE-FILLED PEN
     Route: 058
     Dates: start: 2020
  2. TOCILIZUMAB [Suspect]
     Active Substance: TOCILIZUMAB
     Route: 058
  3. METRONIDAZOLE [Concomitant]
     Active Substance: METRONIDAZOLE
  4. ALENDRONIC ACID [Concomitant]
     Active Substance: ALENDRONIC ACID

REACTIONS (4)
  - Malaise [Unknown]
  - Tendon disorder [Unknown]
  - Tooth abscess [Unknown]
  - Ill-defined disorder [Unknown]
